FAERS Safety Report 7909992-7 (Version None)
Quarter: 2011Q4

REPORT INFORMATION
  Report Type: 
  Country: None (occurrence: None)
  Receive Date: 20111111
  Receipt Date: 20111108
  Transmission Date: 20120403
  Serious: Yes (Death)
  Sender: FDA-Public Use
  Company Number: CA-CELGENEUS-028-21880-11103112

PATIENT
  Sex: Female

DRUGS (6)
  1. GRAVOL TAB [Concomitant]
     Indication: NAUSEA
     Route: 065
     Dates: start: 20091201, end: 20100301
  2. FENTANYL [Concomitant]
     Indication: PAIN
     Dosage: 12.5
     Route: 065
     Dates: start: 20091201, end: 20100301
  3. REVLIMID [Suspect]
     Dosage: 10 MILLIGRAM
     Route: 048
     Dates: start: 20100201, end: 20110319
  4. DEXAMETHASONE [Concomitant]
     Indication: MULTIPLE MYELOMA
     Dosage: 40 MILLIGRAM
     Route: 065
     Dates: start: 20091201, end: 20100301
  5. REVLIMID [Suspect]
     Indication: MULTIPLE MYELOMA
     Dosage: 25 MILLIGRAM
     Route: 048
     Dates: start: 20091201, end: 20100201
  6. DILAUDID [Concomitant]
     Indication: PAIN
     Dosage: 6-8 MG
     Route: 065
     Dates: start: 20091201, end: 20100301

REACTIONS (1)
  - MULTIPLE MYELOMA [None]
